FAERS Safety Report 23691525 (Version 1)
Quarter: 2024Q2

REPORT INFORMATION
  Report Type: Spontaneous
  Country: CA (occurrence: CA)
  Receive Date: 20240401
  Receipt Date: 20240401
  Transmission Date: 20240716
  Serious: Yes (Other)
  Sender: FDA-Public Use
  Company Number: CA-MLMSERVICE-20230823-4497347-1

PATIENT
  Age: 8 Month
  Sex: Male

DRUGS (5)
  1. IRINOTECAN [Suspect]
     Active Substance: IRINOTECAN
     Indication: Embryonal rhabdomyosarcoma
     Dosage: SOLUTION INTRAVENOUS
     Route: 065
  2. VINCRISTINE [Suspect]
     Active Substance: VINCRISTINE
     Indication: Embryonal rhabdomyosarcoma
     Route: 065
  3. CYCLOPHOSPHAMIDE [Concomitant]
     Active Substance: CYCLOPHOSPHAMIDE
     Indication: Embryonal rhabdomyosarcoma
     Route: 048
  4. DACTINOMYCIN [Concomitant]
     Active Substance: DACTINOMYCIN
     Indication: Embryonal rhabdomyosarcoma
     Route: 065
  5. VINCRISTINE [Suspect]
     Active Substance: VINCRISTINE
     Indication: Embryonal rhabdomyosarcoma
     Route: 065

REACTIONS (2)
  - Off label use [Unknown]
  - Gastrointestinal toxicity [Recovered/Resolved]
